FAERS Safety Report 7155070-7 (Version None)
Quarter: 2010Q4

REPORT INFORMATION
  Report Type: 
  Country: None (occurrence: None)
  Receive Date: 20101214
  Receipt Date: 20100513
  Transmission Date: 20110411
  Serious: Yes (Hospitalization)
  Sender: FDA-Public Use
  Company Number: US-AMGEN-KDL309718

PATIENT

DRUGS (2)
  1. ENBREL [Suspect]
     Indication: RHEUMATOID ARTHRITIS
     Dosage: 50 MG, QWK
     Route: 058
     Dates: start: 20070101
  2. PREDNISONE [Suspect]
     Dosage: 2.5 MG, QD
     Dates: start: 20070901

REACTIONS (7)
  - DYSPNOEA [None]
  - EAR INFECTION [None]
  - INCORRECT DRUG ADMINISTRATION RATE [None]
  - INJECTION SITE PAIN [None]
  - PNEUMONIA [None]
  - SINUSITIS [None]
  - UPPER RESPIRATORY TRACT INFECTION [None]
